FAERS Safety Report 21947047 (Version 2)
Quarter: 2023Q1

REPORT INFORMATION
  Report Type: Spontaneous
  Country: US (occurrence: US)
  Receive Date: 20230202
  Receipt Date: 20230202
  Transmission Date: 20230417
  Serious: No
  Sender: FDA-Public Use
  Company Number: US-GALDERMA-US2022008144

PATIENT

DRUGS (1)
  1. SOOLANTRA [Suspect]
     Active Substance: IVERMECTIN
     Indication: Rosacea
     Dosage: 1 DOSAGE FORM, ONCE
     Route: 061
     Dates: start: 20220611, end: 20220611

REACTIONS (11)
  - Application site erythema [Not Recovered/Not Resolved]
  - Application site pain [Not Recovered/Not Resolved]
  - Paraesthesia [Recovered/Resolved]
  - Dermatitis [Not Recovered/Not Resolved]
  - Rash macular [Not Recovered/Not Resolved]
  - Eye swelling [Not Recovered/Not Resolved]
  - Blister [Not Recovered/Not Resolved]
  - Application site dryness [Not Recovered/Not Resolved]
  - Rash papular [Not Recovered/Not Resolved]
  - Rash erythematous [Recovered/Resolved]
  - Rosacea [Unknown]

NARRATIVE: CASE EVENT DATE: 20220611
